FAERS Safety Report 8148985-4 (Version None)
Quarter: 2012Q1

REPORT INFORMATION
  Report Type: 
  Country: None (occurrence: None)
  Receive Date: 20120218
  Receipt Date: 20110810
  Transmission Date: 20120608
  Serious: No
  Sender: FDA-Public Use
  Company Number: US-ALLERGAN-1110790US

PATIENT
  Sex: Female

DRUGS (2)
  1. BOTOX COSMETIC [Suspect]
     Indication: SKIN WRINKLING
     Dosage: UNK
     Route: 030
  2. UNSPECIFIED NEW SKIN CARE PRODUCT [Suspect]
     Indication: PROPHYLAXIS

REACTIONS (2)
  - EYELID OEDEMA [None]
  - ECTROPION [None]
